FAERS Safety Report 13421901 (Version 2)
Quarter: 2017Q2

REPORT INFORMATION
  Report Type: Spontaneous
  Country: DE (occurrence: DE)
  Receive Date: 20170410
  Receipt Date: 20170623
  Transmission Date: 20170830
  Serious: Yes (Death, Hospitalization)
  Sender: FDA-Public Use
  Company Number: DE-B.I. PHARMACEUTICALS,INC./RIDGEFIELD-2017-BI-020185

PATIENT
  Age: 84 Year
  Sex: Female

DRUGS (1)
  1. PRAXBIND [Suspect]
     Active Substance: IDARUCIZUMAB
     Indication: FEMUR FRACTURE
     Route: 042
     Dates: start: 20170307, end: 20170307

REACTIONS (9)
  - Renal failure [Fatal]
  - Oxygen saturation decreased [Unknown]
  - Haemorrhagic diathesis [Fatal]
  - Hypotension [Unknown]
  - Dysphagia [Fatal]
  - Cerebrovascular accident [Fatal]
  - Condition aggravated [Fatal]
  - Haemorrhagic anaemia [Unknown]
  - Haematochezia [Unknown]

NARRATIVE: CASE EVENT DATE: 20170312
